FAERS Safety Report 23188529 (Version 1)
Quarter: 2023Q4

REPORT INFORMATION
  Report Type: Spontaneous
  Country: US (occurrence: US)
  Receive Date: 20231115
  Receipt Date: 20231115
  Transmission Date: 20240110
  Serious: No
  Sender: FDA-Public Use
  Company Number: US-WOODWARD-2023-US-034688

PATIENT
  Age: 68 Year
  Sex: Male
  Weight: 78.93 kg

DRUGS (6)
  1. LOVAZA [Suspect]
     Active Substance: OMEGA-3-ACID ETHYL ESTERS
     Indication: Blood triglycerides increased
     Dosage: 2 CAPSULES DAILY
     Route: 048
     Dates: start: 202008, end: 202102
  2. CALCIUM [Concomitant]
     Active Substance: CALCIUM
  3. MAGNESIUM [Concomitant]
     Active Substance: MAGNESIUM
  4. VITAMIN B-COMPLEX [Concomitant]
     Active Substance: DEXPANTHENOL\NIACINAMIDE\PYRIDOXINE HYDROCHLORIDE\RIBOFLAVIN 5^-PHOSPHATE SODIUM\THIAMINE HYDROCHLOR
  5. VITAMIN C [Concomitant]
     Active Substance: ASCORBIC ACID
  6. VITAMINS [Concomitant]
     Active Substance: VITAMINS

REACTIONS (2)
  - Drug ineffective [Unknown]
  - Blood triglycerides increased [Recovered/Resolved]

NARRATIVE: CASE EVENT DATE: 20200801
